FAERS Safety Report 9827987 (Version 1)
Quarter: 2014Q1

REPORT INFORMATION
  Report Type: Spontaneous
  Country: GB (occurrence: GB)
  Receive Date: 20140117
  Receipt Date: 20140117
  Transmission Date: 20141002
  Serious: Yes (Other)
  Sender: FDA-Public Use
  Company Number: GB-WATSON-2014-00148

PATIENT
  Age: 38 Year
  Sex: Female
  Weight: 74 kg

DRUGS (1)
  1. SERTRALINE (UNKNOWN) [Suspect]
     Indication: DEPRESSION
     Dosage: 50 MG, UNK
     Route: 048
     Dates: start: 20010101

REACTIONS (2)
  - Pre-eclampsia [Unknown]
  - Foetal placental thrombosis [Unknown]
